FAERS Safety Report 9929345 (Version 2)
Quarter: 2014Q1

REPORT INFORMATION
  Report Type: Spontaneous
  Country: NZ (occurrence: NZ)
  Receive Date: 20140227
  Receipt Date: 20140227
  Transmission Date: 20141002
  Serious: Yes (Hospitalization, Other)
  Sender: FDA-Public Use
  Company Number: NZ-ELI_LILLY_AND_COMPANY-NZ201312000583

PATIENT
  Age: 72 Year
  Sex: Female

DRUGS (4)
  1. ZYPREXA RELPREVV [Suspect]
     Indication: SCHIZOAFFECTIVE DISORDER
     Dosage: 405 MG, 4 WEEKLY
     Route: 030
     Dates: start: 20131112
  2. CARBAMAZEPINE [Concomitant]
     Dosage: 200 MG, BID
     Route: 048
  3. LEVOTHYROXINE [Concomitant]
     Dosage: 100 MG, QD
  4. THIAMINE [Concomitant]
     Dosage: 100 MG, QD

REACTIONS (8)
  - Dysarthria [Recovered/Resolved]
  - Disorientation [Recovered/Resolved]
  - Amnesia [Recovered/Resolved]
  - Coma [Recovered/Resolved]
  - Confusional state [Recovered/Resolved]
  - Extrapyramidal disorder [Recovered/Resolved]
  - Sedation [Recovered/Resolved]
  - Toxicity to various agents [Recovered/Resolved]
